FAERS Safety Report 9387017 (Version 1)
Quarter: 2013Q3

REPORT INFORMATION
  Report Type: Spontaneous
  Country: US (occurrence: US)
  Receive Date: 20130708
  Receipt Date: 20130708
  Transmission Date: 20140515
  Serious: Yes (Hospitalization)
  Sender: FDA-Public Use
  Company Number: US-MYLANLABS-2013S1014235

PATIENT
  Age: 32 Year
  Sex: Male

DRUGS (1)
  1. VANCOMYCIN [Suspect]
     Indication: MENINGITIS STAPHYLOCOCCAL
     Dosage: DOSAGE NOT STATED
     Route: 042

REACTIONS (1)
  - Meningitis eosinophilic [Recovered/Resolved]
